FAERS Safety Report 23085036 (Version 2)
Quarter: 2023Q4

REPORT INFORMATION
  Report Type: Spontaneous
  Country: NL (occurrence: NL)
  Receive Date: 20231019
  Receipt Date: 20231114
  Transmission Date: 20240110
  Serious: Yes (Other)
  Sender: FDA-Public Use
  Company Number: NL-VIIV HEALTHCARE LIMITED-NL2023EME139446

PATIENT

DRUGS (5)
  1. VOCABRIA [Suspect]
     Active Substance: CABOTEGRAVIR SODIUM
     Indication: HIV infection CDC category B
     Dosage: UNK
     Dates: start: 2022
  2. RILPIVIRINE [Suspect]
     Active Substance: RILPIVIRINE
     Indication: HIV infection CDC category B
     Dosage: UNK
     Dates: start: 2022
  3. DARUNAVIR [Concomitant]
     Active Substance: DARUNAVIR
     Indication: HIV infection CDC category B
     Dosage: UNK
     Dates: start: 2018
  4. DOLUTEGRAVIR [Concomitant]
     Active Substance: DOLUTEGRAVIR
     Indication: HIV infection CDC category B
     Dosage: UNK
     Dates: start: 2018
  5. EMTRICITABINE\TENOFOVIR DISOPROXIL FUMARATE [Concomitant]
     Active Substance: EMTRICITABINE\TENOFOVIR DISOPROXIL FUMARATE
     Indication: HIV infection CDC category B
     Dosage: UNK

REACTIONS (4)
  - Pathogen resistance [Unknown]
  - Virologic failure [Unknown]
  - Viral load increased [Unknown]
  - Product administration error [Unknown]

NARRATIVE: CASE EVENT DATE: 20220701
